FAERS Safety Report 7616870-X (Version None)
Quarter: 2011Q3

REPORT INFORMATION
  Report Type: 
  Country: None (occurrence: None)
  Receive Date: 20110718
  Receipt Date: 20110706
  Transmission Date: 20111222
  Serious: No
  Sender: FDA-Public Use
  Company Number: US-BIOGENIDEC-2011BI025114

PATIENT
  Age: 68 Year
  Sex: Male

DRUGS (2)
  1. DANTROLENE SODIUM [Concomitant]
     Indication: MUSCLE SPASTICITY
  2. TYSABRI [Suspect]
     Indication: MULTIPLE SCLEROSIS
     Route: 042
     Dates: start: 20070329, end: 20091123

REACTIONS (1)
  - GAIT DISTURBANCE [None]
